FAERS Safety Report 8575337-5 (Version None)
Quarter: 2012Q3

REPORT INFORMATION
  Report Type: 
  Country: None (occurrence: None)
  Receive Date: 20120807
  Receipt Date: 20120803
  Transmission Date: 20120928
  Serious: No
  Sender: FDA-Public Use
  Company Number: US-PFIZER INC-2012153270

PATIENT
  Age: 75 Year
  Sex: Female
  Weight: 56.689 kg

DRUGS (5)
  1. ATORVASTATIN [Concomitant]
     Indication: BLOOD CHOLESTEROL INCREASED
     Dosage: 20 MG, DAILY
  2. CALCIUM CARBONATE [Suspect]
     Indication: MINERAL SUPPLEMENTATION
     Dosage: UNK
     Dates: end: 20120101
  3. LEVOTHYROXINE SODIUM [Suspect]
     Indication: THYROID DISORDER
     Dosage: 100 UG, DAILY
  4. ATENOLOL [Concomitant]
     Dosage: UNK, DAILY
  5. CALTRATE 600 + D SOFT CHEWS [Suspect]
     Indication: MINERAL SUPPLEMENTATION
     Dosage: UNK, 2X/DAY
     Route: 048
     Dates: start: 20120101

REACTIONS (4)
  - POOR QUALITY DRUG ADMINISTERED [None]
  - TABLET PHYSICAL ISSUE [None]
  - PRODUCT COLOUR ISSUE [None]
  - BLOOD CALCIUM DECREASED [None]
